FAERS Safety Report 14347819 (Version 3)
Quarter: 2018Q1

REPORT INFORMATION
  Report Type: Spontaneous
  Country: FR (occurrence: FR)
  Receive Date: 20180103
  Receipt Date: 20180209
  Transmission Date: 20180509
  Serious: Yes (Other)
  Sender: FDA-Public Use
  Company Number: FR-INDIVIOR LIMITED-INDV-107207-2017

PATIENT
  Age: 49 Year
  Sex: Male

DRUGS (1)
  1. SUBUTEX [Suspect]
     Active Substance: BUPRENORPHINE HYDROCHLORIDE
     Indication: PRODUCT USED FOR UNKNOWN INDICATION
     Dosage: UNK
     Route: 042
     Dates: start: 1995

REACTIONS (5)
  - Chronic hepatitis C [Recovering/Resolving]
  - Intentional product misuse [Recovering/Resolving]
  - Intentional product use issue [Unknown]
  - Drug dependence [Recovering/Resolving]
  - Substance use disorder [Recovering/Resolving]

NARRATIVE: CASE EVENT DATE: 1988
